FAERS Safety Report 9079090 (Version 1)
Quarter: 2013Q1

REPORT INFORMATION
  Report Type: Report from Study
  Country: US (occurrence: US)
  Receive Date: 20130215
  Receipt Date: 20130215
  Transmission Date: 20140127
  Serious: Yes (Other)
  Sender: FDA-Public Use
  Company Number: US-ABBOTT-13P-163-1033298-00

PATIENT
  Age: 47 None
  Sex: Female
  Weight: 71.28 kg

DRUGS (6)
  1. HUMIRA [Suspect]
     Indication: RHEUMATOID ARTHRITIS
     Route: 058
  2. HUMIRA [Suspect]
     Indication: PSORIATIC ARTHROPATHY
  3. METOPROLOL [Concomitant]
     Indication: HYPERTENSION
  4. LOSARTAN [Concomitant]
     Indication: HYPERTENSION
  5. LOVAZA [Concomitant]
     Indication: PRODUCT USED FOR UNKNOWN INDICATION
  6. FOLIC ACID [Concomitant]
     Indication: VITAMIN SUPPLEMENTATION
     Dosage: DAILY

REACTIONS (3)
  - Leiomyoma [Unknown]
  - Drug dose omission [Unknown]
  - Pain [Unknown]
